FAERS Safety Report 8499189-7 (Version None)
Quarter: 2012Q3

REPORT INFORMATION
  Report Type: 
  Country: None (occurrence: None)
  Receive Date: 20120710
  Receipt Date: 20120702
  Transmission Date: 20120928
  Serious: Yes (Other)
  Sender: FDA-Public Use
  Company Number: US-TEVA-346209USA

PATIENT
  Sex: Male
  Weight: 83.99 kg

DRUGS (3)
  1. VITAMIN D [Concomitant]
     Indication: SUPPLEMENTATION THERAPY
     Dosage: 2857.1429 IU (INTERNATIONAL UNIT);
     Route: 048
  2. NUVIGIL [Suspect]
     Indication: NARCOLEPSY
     Route: 048
     Dates: start: 20110901
  3. XANAX [Interacting]
     Dosage: UP TO 4 MG DAILY
     Dates: start: 20120301

REACTIONS (8)
  - AGITATION [None]
  - AGGRESSION [None]
  - VITAMIN D DECREASED [None]
  - DRUG INTERACTION [None]
  - PERSONALITY CHANGE [None]
  - MANIA [None]
  - INTENTIONAL DRUG MISUSE [None]
  - AFFECTIVE DISORDER [None]
